FAERS Safety Report 17220304 (Version 6)
Quarter: 2025Q4

REPORT INFORMATION
  Report Type: Spontaneous
  Country: EU (occurrence: EU)
  Receive Date: 20191231
  Receipt Date: 20251008
  Transmission Date: 20260117
  Serious: Yes (Death, Hospitalization, Other)
  Sender: MYLAN
  Company Number: EU-KRKA-RO2019K15592LIT

PATIENT
  Age: 41 Year
  Sex: Female

DRUGS (28)
  1. ZOLEDRONIC ACID [Suspect]
     Active Substance: ZOLEDRONIC ACID
     Indication: Radiotherapy
     Dosage: 4 MG; EVERY 3 WEEKS
  2. ZOLEDRONIC ACID [Suspect]
     Active Substance: ZOLEDRONIC ACID
     Indication: Metastases to bone
     Dosage: 4 MG; EVERY 3 WEEKS
     Route: 065
  3. ZOLEDRONIC ACID [Suspect]
     Active Substance: ZOLEDRONIC ACID
     Dosage: 4 MG; EVERY 3 WEEKS
     Route: 065
  4. ZOLEDRONIC ACID [Suspect]
     Active Substance: ZOLEDRONIC ACID
     Dosage: 4 MG; EVERY 3 WEEKS
  5. PACLITAXEL [Suspect]
     Active Substance: PACLITAXEL
     Indication: HER2 positive breast cancer
     Dosage: 175 MILLIGRAM/SQ. METER, Q3W
     Dates: end: 201501
  6. PACLITAXEL [Suspect]
     Active Substance: PACLITAXEL
     Dosage: 175 MILLIGRAM/SQ. METER, Q3W
     Route: 065
     Dates: end: 201501
  7. PACLITAXEL [Suspect]
     Active Substance: PACLITAXEL
     Dosage: 175 MILLIGRAM/SQ. METER, Q3W
     Route: 065
     Dates: end: 201501
  8. PACLITAXEL [Suspect]
     Active Substance: PACLITAXEL
     Dosage: 175 MILLIGRAM/SQ. METER, Q3W
     Dates: end: 201501
  9. TRASTUZUMAB [Suspect]
     Active Substance: TRASTUZUMAB
     Indication: HER2 positive breast cancer
     Dosage: 6 MG/KG; EVERY 3 WEEKS
     Dates: start: 201501, end: 201706
  10. TRASTUZUMAB [Suspect]
     Active Substance: TRASTUZUMAB
     Indication: Chemotherapy
     Dosage: 6 MG/KG; EVERY 3 WEEKS
     Dates: start: 201501, end: 201706
  11. TRASTUZUMAB [Suspect]
     Active Substance: TRASTUZUMAB
     Dosage: 6 MG/KG; EVERY 3 WEEKS
     Route: 065
     Dates: start: 201501, end: 201706
  12. TRASTUZUMAB [Suspect]
     Active Substance: TRASTUZUMAB
     Dosage: 6 MG/KG; EVERY 3 WEEKS
     Route: 065
     Dates: start: 201501, end: 201706
  13. TRASTUZUMAB [Suspect]
     Active Substance: TRASTUZUMAB
     Dosage: 3.6 MG/KG, 3X PER DAY
     Dates: start: 201802
  14. TRASTUZUMAB [Suspect]
     Active Substance: TRASTUZUMAB
     Dosage: 3.6 MG/KG, 3X PER DAY
     Dates: start: 201802
  15. TRASTUZUMAB [Suspect]
     Active Substance: TRASTUZUMAB
     Dosage: 3.6 MG/KG, 3X PER DAY
     Route: 065
     Dates: start: 201802
  16. TRASTUZUMAB [Suspect]
     Active Substance: TRASTUZUMAB
     Dosage: 3.6 MG/KG, 3X PER DAY
     Route: 065
     Dates: start: 201802
  17. TRASTUZUMAB [Suspect]
     Active Substance: TRASTUZUMAB
     Indication: Chemotherapy
     Dosage: 8 MG/KG; LOADING DOSE
     Dates: start: 201501, end: 201706
  18. TRASTUZUMAB [Suspect]
     Active Substance: TRASTUZUMAB
     Dosage: 8 MG/KG; LOADING DOSE
     Route: 042
     Dates: start: 201501, end: 201706
  19. TRASTUZUMAB [Suspect]
     Active Substance: TRASTUZUMAB
     Dosage: 8 MG/KG; LOADING DOSE
     Route: 042
     Dates: start: 201501, end: 201706
  20. TRASTUZUMAB [Suspect]
     Active Substance: TRASTUZUMAB
     Dosage: 8 MG/KG; LOADING DOSE
     Dates: start: 201501, end: 201706
  21. CAPECITABINE [Suspect]
     Active Substance: CAPECITABINE
     Indication: Chemotherapy
     Dosage: 2000 MG/M2, QD (DAYS 1-14)
     Dates: start: 201602
  22. CAPECITABINE [Suspect]
     Active Substance: CAPECITABINE
     Indication: Breast cancer
     Dosage: 2000 MG/M2, QD (DAYS 1-14)
     Route: 065
     Dates: start: 201602
  23. CAPECITABINE [Suspect]
     Active Substance: CAPECITABINE
     Indication: Metastases to central nervous system
     Dosage: 2000 MG/M2, QD (DAYS 1-14)
     Route: 065
     Dates: start: 201602
  24. CAPECITABINE [Suspect]
     Active Substance: CAPECITABINE
     Indication: HER2 positive breast cancer
     Dosage: 2000 MG/M2, QD (DAYS 1-14)
     Dates: start: 201602
  25. LAPATINIB [Suspect]
     Active Substance: LAPATINIB
     Indication: Chemotherapy
     Dosage: 1250 MG, 1X PER DAY
     Dates: start: 201602, end: 201802
  26. LAPATINIB [Suspect]
     Active Substance: LAPATINIB
     Indication: Metastases to central nervous system
     Dosage: 1250 MG, 1X PER DAY
     Route: 065
     Dates: start: 201602, end: 201802
  27. LAPATINIB [Suspect]
     Active Substance: LAPATINIB
     Indication: Breast cancer
     Dosage: 1250 MG, 1X PER DAY
     Route: 065
     Dates: start: 201602, end: 201802
  28. LAPATINIB [Suspect]
     Active Substance: LAPATINIB
     Indication: HER2 positive breast cancer
     Dosage: 1250 MG, 1X PER DAY
     Dates: start: 201602, end: 201802

REACTIONS (12)
  - Disease progression [Fatal]
  - General physical health deterioration [Fatal]
  - Malignant neoplasm progression [Unknown]
  - Metastases to central nervous system [Unknown]
  - Neuropathy peripheral [Unknown]
  - HER2 positive breast cancer [Unknown]
  - Breast cancer [Unknown]
  - Headache [Unknown]
  - Vomiting [Unknown]
  - Off label use [Unknown]
  - No adverse event [Unknown]
  - Intentional product use issue [Unknown]

NARRATIVE: CASE EVENT DATE: 20150101
